FAERS Safety Report 6358961-X (Version None)
Quarter: 2009Q3

REPORT INFORMATION
  Report Type: 
  Country: None (occurrence: None)
  Receive Date: 20090914
  Receipt Date: 20090831
  Transmission Date: 20100115
  Serious: Yes (Death)
  Sender: FDA-Public Use
  Company Number: 20090376

PATIENT
  Age: 1 Year
  Sex: Male
  Weight: 9 kg

DRUGS (6)
  1. VENOFER [Suspect]
     Indication: ANAEMIA
     Dosage: 40 MG IN 40 ML SALINE/30 MIN INTRAVENOUS
     Route: 042
     Dates: start: 20090608, end: 20090608
  2. ALFACALCIDOL [Concomitant]
  3. EPREX [Concomitant]
  4. IRON DEXTRAN [Concomitant]
  5. ORAL IRON [Concomitant]
  6. POTASSIC CARBONATE [Concomitant]

REACTIONS (4)
  - ANAPHYLACTOID REACTION [None]
  - ERYTHEMA [None]
  - OFF LABEL USE [None]
  - OVERDOSE [None]
